FAERS Safety Report 24055149 (Version 1)
Quarter: 2024Q3

REPORT INFORMATION
  Report Type: Spontaneous
  Country: US (occurrence: None)
  Receive Date: 20240703
  Receipt Date: 20240703
  Transmission Date: 20241016
  Serious: Yes (Life-Threatening, Hospitalization)
  Sender: Public
  Company Number: None

PATIENT
  Age: 23 Year
  Sex: Female
  Weight: 108 kg

DRUGS (1)
  1. HERBALS\MUSHROOMS UNSPECIFIED [Suspect]
     Active Substance: HERBALS\MUSHROOMS UNSPECIFIED
     Route: 048

REACTIONS (9)
  - Nausea [None]
  - Chest discomfort [None]
  - Near death experience [None]
  - Suicidal ideation [None]
  - Asocial behaviour [None]
  - Vomiting [None]
  - Altered state of consciousness [None]
  - Contusion [None]
  - Head injury [None]

NARRATIVE: CASE EVENT DATE: 20240630
